FAERS Safety Report 14512955 (Version 1)
Quarter: 2018Q1

REPORT INFORMATION
  Report Type: Spontaneous
  Country: US (occurrence: US)
  Receive Date: 20180209
  Receipt Date: 20180209
  Transmission Date: 20180509
  Serious: No
  Sender: FDA-Public Use
  Company Number: US-ALLERGAN-1731354US

PATIENT
  Sex: Female

DRUGS (4)
  1. RESTASIS [Suspect]
     Active Substance: CYCLOSPORINE
     Dosage: 1 DF, BID
     Route: 047
     Dates: start: 201607
  2. RESTASIS [Suspect]
     Active Substance: CYCLOSPORINE
     Indication: DRY EYE
     Dosage: 1 DF, BID
     Route: 047
     Dates: start: 201607
  3. NEOMYCIN. [Concomitant]
     Active Substance: NEOMYCIN
     Dosage: UNK
     Route: 047
  4. DEXAMETHASONE. [Concomitant]
     Active Substance: DEXAMETHASONE
     Dosage: UNK
     Route: 047

REACTIONS (4)
  - Accidental exposure to product [Unknown]
  - Product physical consistency issue [Unknown]
  - Superficial injury of eye [Unknown]
  - Eye pain [Unknown]
